FAERS Safety Report 16144692 (Version 1)
Quarter: 2019Q2

REPORT INFORMATION
  Report Type: Spontaneous
  Country: US (occurrence: US)
  Receive Date: 20190401
  Receipt Date: 20190401
  Transmission Date: 20190711
  Serious: Yes (Hospitalization, Disabling, Other)
  Sender: FDA-Public Use
  Company Number: None

PATIENT
  Age: 69 Year
  Sex: Female
  Weight: 76.5 kg

DRUGS (13)
  1. ALPRAZOLAM. [Concomitant]
     Active Substance: ALPRAZOLAM
  2. SOTALOL HCL [Concomitant]
     Active Substance: SOTALOL
  3. CENTRUM SILVER ULTRA WOMEN [Concomitant]
  4. ROSUVASTATIN CALCIUM. [Concomitant]
     Active Substance: ROSUVASTATIN CALCIUM
  5. ELIQUIS [Concomitant]
     Active Substance: APIXABAN
  6. DULOXETINE. [Concomitant]
     Active Substance: DULOXETINE
  7. KEPPRA [Concomitant]
     Active Substance: LEVETIRACETAM
  8. BIOTIN [Concomitant]
     Active Substance: BIOTIN
  9. PROLIA [Suspect]
     Active Substance: DENOSUMAB
     Indication: OSTEOPOROSIS
     Dosage: ?          OTHER FREQUENCY:6 MONTHS;?
     Route: 030
     Dates: start: 20181107, end: 20181107
  10. AMLODIPINE [Concomitant]
     Active Substance: AMLODIPINE BESYLATE
  11. VITAMIN B12 [Concomitant]
     Active Substance: CYANOCOBALAMIN
  12. METFORMIN [Concomitant]
     Active Substance: METFORMIN HYDROCHLORIDE
  13. VAGIFEM [Concomitant]
     Active Substance: ESTRADIOL

REACTIONS (2)
  - Seizure [None]
  - Atrial fibrillation [None]

NARRATIVE: CASE EVENT DATE: 20181130
